FAERS Safety Report 5297726-7 (Version None)
Quarter: 2007Q2

REPORT INFORMATION
  Report Type: 
  Country: None (occurrence: None)
  Receive Date: 20070412
  Receipt Date: 20070412
  Transmission Date: 20071010
  Serious: Yes (Hospitalization)
  Sender: FDA-Public Use
  Company Number: None

PATIENT
  Sex: Female
  Weight: 84 kg

DRUGS (11)
  1. CISPLATIN [Suspect]
     Dosage: 100 MG
  2. NAVELBINE [Suspect]
     Dosage: 60 MG
  3. AUGMENTIN '125' [Concomitant]
  4. CIPRO [Concomitant]
  5. DOSS [Concomitant]
  6. FEXERIL [Concomitant]
  7. IBUPROFEN [Concomitant]
  8. NEUPOGEN [Concomitant]
  9. PERCOSET [Concomitant]
  10. PHENERGAN HCL [Concomitant]
  11. PROCRIT [Concomitant]

REACTIONS (4)
  - ELECTROLYTE IMBALANCE [None]
  - HYPERPHOSPHATAEMIA [None]
  - METABOLIC ACIDOSIS [None]
  - RENAL FAILURE ACUTE [None]
